FAERS Safety Report 4901909-2 (Version None)
Quarter: 2006Q1

REPORT INFORMATION
  Report Type: 
  Country: None (occurrence: None)
  Receive Date: 20060201
  Receipt Date: 20060125
  Transmission Date: 20060701
  Serious: Yes (Hospitalization)
  Sender: FDA-Public Use
  Company Number: STA-AE-06-001

PATIENT
  Age: 75 Year
  Sex: Female

DRUGS (7)
  1. NAPROXEN [Suspect]
     Indication: ARTHRITIS
     Dosage: SEE IMAGE
     Dates: start: 20060116, end: 20060116
  2. NAPROXEN [Suspect]
     Indication: ARTHRITIS
     Dosage: SEE IMAGE
     Dates: start: 20051124
  3. NAPROXEN [Suspect]
     Indication: ARTHRITIS
     Dosage: SEE IMAGE
     Dates: start: 20051129
  4. AVISTA [Concomitant]
  5. ZOCOR [Concomitant]
  6. TOPROL-XL [Concomitant]
  7. ASPIRIN [Concomitant]

REACTIONS (4)
  - BACK DISORDER [None]
  - DIARRHOEA [None]
  - MUSCLE SPASMS [None]
  - VOMITING [None]
